FAERS Safety Report 13058151 (Version 1)
Quarter: 2016Q4

REPORT INFORMATION
  Report Type: Spontaneous
  Country: CA (occurrence: CA)
  Receive Date: 20161223
  Receipt Date: 20161223
  Transmission Date: 20170207
  Serious: Yes (Other)
  Sender: FDA-Public Use
  Company Number: CA-JNJFOC-20161211981

PATIENT
  Age: 81 Year
  Sex: Male
  Weight: 78.02 kg

DRUGS (2)
  1. GLUCOSE [Concomitant]
     Active Substance: DEXTROSE
     Indication: BLOOD GLUCOSE ABNORMAL
     Route: 065
  2. TYLENOL EXTRA STRENGTH EZTAB [Suspect]
     Active Substance: ACETAMINOPHEN
     Indication: ARTHRALGIA
     Dosage: DOSE 2 (UNIT NOT REPORTED), FOR A FEW??YEARS
     Route: 048

REACTIONS (1)
  - Therapeutic response decreased [Unknown]
